FAERS Safety Report 6190985-8 (Version None)
Quarter: 2009Q2

REPORT INFORMATION
  Report Type: 
  Country: None (occurrence: None)
  Receive Date: 20090513
  Receipt Date: 20090429
  Transmission Date: 20091009
  Serious: Yes (Death, Hospitalization, Other)
  Sender: FDA-Public Use
  Company Number: ADE# 09-194DPR

PATIENT
  Age: 85 Year
  Sex: Male

DRUGS (7)
  1. DIGOXIN [Suspect]
     Indication: LOSS OF CONSCIOUSNESS
  2. LEXAPRO [Concomitant]
  3. FUROSEMIDE [Concomitant]
  4. IBUPROFEN [Concomitant]
  5. ARICEPT [Concomitant]
  6. UNSPECIFIED EYE DROPS FOR GLAUCOMA PREVENTION [Concomitant]
  7. FLOMAX [Concomitant]

REACTIONS (6)
  - FALL [None]
  - LOSS OF CONSCIOUSNESS [None]
  - MYOCARDIAL INFARCTION [None]
  - PARKINSON'S DISEASE [None]
  - PNEUMONIA [None]
  - PROSTATE CANCER [None]
